FAERS Safety Report 12813730 (Version 1)
Quarter: 2016Q4

REPORT INFORMATION
  Report Type: Spontaneous
  Country: US (occurrence: US)
  Receive Date: 20161005
  Receipt Date: 20161005
  Transmission Date: 20170207
  Serious: No
  Sender: FDA-Public Use
  Company Number: US-AMGEN-USASP2016028727

PATIENT
  Age: 83 Year
  Sex: Female

DRUGS (1)
  1. PROLIA [Suspect]
     Active Substance: DENOSUMAB
     Indication: OSTEOPOROSIS POSTMENOPAUSAL
     Dosage: UNK UNK, Q6MO
     Route: 065

REACTIONS (6)
  - Feeling abnormal [Recovering/Resolving]
  - Psoriasis [Unknown]
  - Blister [Unknown]
  - Back pain [Recovering/Resolving]
  - Pleurisy [Unknown]
  - Pain [Recovering/Resolving]
